FAERS Safety Report 18818223 (Version 3)
Quarter: 2021Q1

REPORT INFORMATION
  Report Type: Spontaneous
  Country: US (occurrence: US)
  Receive Date: 20210201
  Receipt Date: 20210223
  Transmission Date: 20210419
  Serious: Yes (Hospitalization, Other)
  Sender: FDA-Public Use
  Company Number: US-ABBVIE-20K-163-3600535-00

PATIENT
  Age: 60 Year
  Sex: Male
  Weight: 68.1 kg

DRUGS (5)
  1. HUMIRA [Suspect]
     Active Substance: ADALIMUMAB
     Indication: RHEUMATOID ARTHRITIS
  2. OXYCODONE [Concomitant]
     Active Substance: OXYCODONE
     Indication: PAIN
  3. HUMIRA [Suspect]
     Active Substance: ADALIMUMAB
     Indication: ANKYLOSING SPONDYLITIS
     Route: 058
     Dates: start: 2014
  4. TAMSULOSIN [Concomitant]
     Active Substance: TAMSULOSIN
     Indication: PROSTATIC DISORDER
  5. OXYCODONE [Concomitant]
     Active Substance: OXYCODONE
     Indication: PRODUCT USED FOR UNKNOWN INDICATION

REACTIONS (32)
  - Squamous cell carcinoma of skin [Recovered/Resolved]
  - Weight decreased [Recovered/Resolved]
  - Deafness neurosensory [Not Recovered/Not Resolved]
  - Dyspnoea [Unknown]
  - Needle issue [Recovered/Resolved]
  - Device issue [Unknown]
  - Intestinal obstruction [Recovering/Resolving]
  - Haemorrhage [Recovered/Resolved]
  - Surgery [Unknown]
  - Arthropod sting [Unknown]
  - Neoplasm [Recovered/Resolved]
  - Malignant melanoma [Recovered/Resolved]
  - Malignant melanoma [Recovered/Resolved]
  - Squamous cell carcinoma of skin [Recovered/Resolved]
  - Musculoskeletal disorder [Unknown]
  - Anal incontinence [Unknown]
  - Deafness traumatic [Unknown]
  - Presbyacusis [Unknown]
  - Food intolerance [Unknown]
  - Arthritis [Unknown]
  - Deafness [Not Recovered/Not Resolved]
  - Thrombosis [Recovered/Resolved]
  - Gastrointestinal injury [Unknown]
  - Immunodeficiency [Unknown]
  - Hepatic steatosis [Not Recovered/Not Resolved]
  - Nephrolithiasis [Not Recovered/Not Resolved]
  - Discomfort [Recovering/Resolving]
  - Haemorrhage [Recovered/Resolved]
  - Basal cell carcinoma [Recovered/Resolved]
  - Anaphylactic shock [Recovered/Resolved]
  - Neoplasm [Recovered/Resolved]
  - Scar [Recovering/Resolving]

NARRATIVE: CASE EVENT DATE: 2014
